FAERS Safety Report 23471950 (Version 1)
Quarter: 2024Q1

REPORT INFORMATION
  Report Type: Spontaneous
  Country: CN (occurrence: CN)
  Receive Date: 20240202
  Receipt Date: 20240202
  Transmission Date: 20240410
  Serious: Yes (Hospitalization, Other)
  Sender: FDA-Public Use
  Company Number: CN-ELI_LILLY_AND_COMPANY-CN202401015291

PATIENT
  Age: 67 Year
  Sex: Male
  Weight: 68 kg

DRUGS (1)
  1. ABEMACICLIB [Suspect]
     Active Substance: ABEMACICLIB
     Indication: Neoplasm
     Dosage: 150 MG, BID
     Route: 048
     Dates: start: 20231226, end: 20240107

REACTIONS (4)
  - C-reactive protein increased [Recovering/Resolving]
  - Agranulocytosis [Recovering/Resolving]
  - Septic shock [Recovering/Resolving]
  - Platelet count decreased [Recovering/Resolving]

NARRATIVE: CASE EVENT DATE: 20240106
